FAERS Safety Report 5410435-6 (Version None)
Quarter: 2007Q3

REPORT INFORMATION
  Report Type: 
  Country: None (occurrence: None)
  Receive Date: 20070810
  Receipt Date: 20070803
  Transmission Date: 20080115
  Serious: Yes (Life-Threatening, Hospitalization)
  Sender: FDA-Public Use
  Company Number: IT-JNJFOC-20041105669

PATIENT
  Sex: Male
  Weight: 65 kg

DRUGS (15)
  1. PLACEBO [Suspect]
     Route: 042
  2. PLACEBO [Suspect]
     Indication: ACUTE MYOCARDIAL INFARCTION
     Route: 042
  3. PLACEBO [Suspect]
     Route: 042
  4. PLACEBO [Suspect]
     Route: 042
  5. ABCIXIMAB [Suspect]
  6. ABCIXIMAB [Suspect]
     Indication: ACUTE MYOCARDIAL INFARCTION
  7. WARFARIN SODIUM [Concomitant]
     Indication: ANTICOAGULANT THERAPY
     Route: 048
  8. AMIODARONE HCL [Concomitant]
     Indication: ARRHYTHMIA
     Route: 048
  9. STATIN [Concomitant]
     Indication: HYPERCHOLESTEROLAEMIA
     Route: 048
  10. LASIX [Concomitant]
     Indication: DIURETIC THERAPY
     Route: 048
  11. COVERSYL [Concomitant]
     Dosage: 1/2 DAILY
     Route: 048
  12. ACETYLSALICYLIC ACID SRT [Concomitant]
  13. DIGOXIN [Concomitant]
  14. PROMAZINE HYDROCHLORIDE [Concomitant]
  15. TICLOPIDINE HCL [Concomitant]

REACTIONS (5)
  - ATRIAL FIBRILLATION [None]
  - CARDIAC ARREST [None]
  - MITRAL VALVE INCOMPETENCE [None]
  - MITRAL VALVE PROLAPSE [None]
  - VENTRICULAR FIBRILLATION [None]
